FAERS Safety Report 22400282 (Version 1)
Quarter: 2023Q2

REPORT INFORMATION
  Report Type: Spontaneous
  Country: US (occurrence: None)
  Receive Date: 20230601
  Receipt Date: 20230601
  Transmission Date: 20230722
  Serious: No
  Sender: FDA-Public Use
  Company Number: None

PATIENT
  Age: 71 Year
  Sex: Female
  Weight: 76.66 kg

DRUGS (6)
  1. ENBREL [Suspect]
     Active Substance: ETANERCEPT
     Indication: Psoriatic arthropathy
     Dosage: INJECT 50MG SUBCUTANEOUSLY ONCE WEEKLY AS DIRECTED?
     Route: 058
     Dates: start: 202209
  2. ENBREL [Suspect]
     Active Substance: ETANERCEPT
     Indication: Rheumatoid arthritis
  3. ENBREL [Suspect]
     Active Substance: ETANERCEPT
     Indication: Psoriasis
  4. OTREXUP [Suspect]
     Active Substance: METHOTREXATE
     Indication: Psoriatic arthropathy
     Dosage: 12.5MG (0.4ML) ;?INJECT 12.5MG (0.4ML) MG SUBCUTANEOUSLY ONCE ON THE SAME DAY EACH WEEK WEEK AS DIRE
     Route: 058
     Dates: start: 202212
  5. OTREXUP [Suspect]
     Active Substance: METHOTREXATE
     Indication: Rheumatoid arthritis
  6. OTREXUP [Suspect]
     Active Substance: METHOTREXATE
     Indication: Psoriasis

REACTIONS (2)
  - Illness [None]
  - Therapy interrupted [None]
